FAERS Safety Report 11462034 (Version 1)
Quarter: 2015Q3

REPORT INFORMATION
  Report Type: Spontaneous
  Country: US (occurrence: US)
  Receive Date: 20150831
  Receipt Date: 20150831
  Transmission Date: 20151125
  Serious: No
  Sender: FDA-Public Use
  Company Number: US-ELI_LILLY_AND_COMPANY-US201009005843

PATIENT
  Age: 32 Year
  Sex: Female

DRUGS (2)
  1. CYMBALTA [Suspect]
     Active Substance: DULOXETINE HYDROCHLORIDE
     Dosage: 60 MG, UNK
  2. VICTOZA [Concomitant]
     Active Substance: LIRAGLUTIDE

REACTIONS (4)
  - Dizziness [Recovered/Resolved]
  - Blood glucose increased [Recovered/Resolved]
  - Feeling jittery [Recovered/Resolved]
  - Drug withdrawal syndrome [Recovered/Resolved]
